FAERS Safety Report 7700632-9 (Version None)
Quarter: 2011Q3

REPORT INFORMATION
  Report Type: 
  Country: None (occurrence: None)
  Receive Date: 20110822
  Receipt Date: 20110822
  Transmission Date: 20111222
  Serious: Yes (Other)
  Sender: FDA-Public Use
  Company Number: None

PATIENT
  Age: 41 Year
  Sex: Male
  Weight: 54.431 kg

DRUGS (7)
  1. ERGOCALCIFERAL [Concomitant]
  2. INVEGA [Suspect]
     Indication: AUTISM SPECTRUM DISORDER
     Dates: start: 20110408, end: 20110819
  3. CALCIUM WITH VITAMIN D [Concomitant]
  4. SEROQUEL [Concomitant]
  5. DEPAKOTE ER [Concomitant]
  6. PRILOSEC [Concomitant]
  7. ZYRTEC [Concomitant]

REACTIONS (1)
  - BLOOD PROLACTIN INCREASED [None]
